FAERS Safety Report 5612762-6 (Version None)
Quarter: 2008Q1

REPORT INFORMATION
  Report Type: 
  Country: None (occurrence: None)
  Receive Date: 20080204
  Receipt Date: 20080124
  Transmission Date: 20080703
  Serious: Yes (Hospitalization)
  Sender: FDA-Public Use
  Company Number: ES-ELI_LILLY_AND_COMPANY-ES200801005774

PATIENT
  Age: 68 Year
  Sex: Female

DRUGS (6)
  1. FORTEO [Suspect]
     Indication: OSTEOPOROSIS
     Dosage: 20 UG, UNKNOWN
     Route: 058
     Dates: start: 20070701
  2. ANTIHYPERTENSIVES [Concomitant]
     Indication: HYPERTENSION
     Dosage: UNK, UNKNOWN
  3. FLUOXETINE [Concomitant]
     Indication: DEPRESSION
     Dosage: UNK, UNKNOWN
  4. OMEPRAZOLE [Concomitant]
     Indication: PROPHYLAXIS
     Dosage: UNK, UNKNOWN
  5. PREDNISONE TAB [Concomitant]
     Dosage: UNK, UNKNOWN
  6. CALCIUM GLUCONATE [Concomitant]
     Dosage: UNK, UNKNOWN

REACTIONS (2)
  - PYREXIA [None]
  - RENAL FAILURE [None]
